FAERS Safety Report 26179949 (Version 2)
Quarter: 2025Q4

REPORT INFORMATION
  Report Type: Spontaneous
  Country: BR (occurrence: BR)
  Receive Date: 20251219
  Receipt Date: 20251224
  Transmission Date: 20260118
  Serious: Yes (Other)
  Sender: SANDOZ
  Company Number: BR-002147023-NVSC2024BR084128

PATIENT
  Age: 64 Year
  Sex: Female
  Weight: 93 kg

DRUGS (7)
  1. ANASTROZOLE [Suspect]
     Active Substance: ANASTROZOLE
     Indication: Breast cancer metastatic
     Dosage: UNK, QD
  2. KISQALI [Suspect]
     Active Substance: RIBOCICLIB SUCCINATE
     Indication: Breast cancer metastatic
     Dosage: UNK
  3. KISQALI [Suspect]
     Active Substance: RIBOCICLIB SUCCINATE
     Dosage: UNK
  4. KISQALI [Suspect]
     Active Substance: RIBOCICLIB SUCCINATE
     Dosage: UNK
  5. KISQALI [Suspect]
     Active Substance: RIBOCICLIB SUCCINATE
     Dosage: 2 DOSAGE FORM
  6. KISQALI [Suspect]
     Active Substance: RIBOCICLIB SUCCINATE
     Dosage: UNK
  7. KISQALI [Suspect]
     Active Substance: RIBOCICLIB SUCCINATE
     Dosage: UNK (21 DAYS, STOP FOR 7 DAYS AND  CONTINUE),FILM-COATED TABLET

REACTIONS (31)
  - Breast cancer recurrent [Unknown]
  - Cardiac disorder [Recovered/Resolved]
  - Joint swelling [Not Recovered/Not Resolved]
  - Knee deformity [Not Recovered/Not Resolved]
  - Lip dry [Unknown]
  - Oral pain [Recovering/Resolving]
  - Oral mucosal blistering [Recovering/Resolving]
  - Osteoarthritis [Not Recovered/Not Resolved]
  - Muscular weakness [Not Recovered/Not Resolved]
  - Onychoclasis [Not Recovered/Not Resolved]
  - Skin atrophy [Not Recovered/Not Resolved]
  - Musculoskeletal chest pain [Recovering/Resolving]
  - Eructation [Recovered/Resolved]
  - Gastritis [Recovering/Resolving]
  - Umbilical hernia [Recovering/Resolving]
  - Abdominal hernia [Recovering/Resolving]
  - Gait disturbance [Unknown]
  - Urinary incontinence [Unknown]
  - Skin exfoliation [Not Recovered/Not Resolved]
  - Arthralgia [Not Recovered/Not Resolved]
  - Nervousness [Not Recovered/Not Resolved]
  - Confusional state [Unknown]
  - Dry mouth [Unknown]
  - Pain [Unknown]
  - Anxiety [Recovering/Resolving]
  - Dizziness [Unknown]
  - Memory impairment [Not Recovered/Not Resolved]
  - Head discomfort [Unknown]
  - Alopecia [Recovering/Resolving]
  - Bone pain [Unknown]
  - Headache [Unknown]

NARRATIVE: CASE EVENT DATE: 20251113
